FAERS Safety Report 17101132 (Version 3)
Quarter: 2020Q1

REPORT INFORMATION
  Report Type: Report from Study
  Country: US (occurrence: US)
  Receive Date: 20191202
  Receipt Date: 20200107
  Transmission Date: 20200409
  Serious: No
  Sender: FDA-Public Use
  Company Number: US-SA-2019SA330551

PATIENT
  Age: 23 Year
  Sex: Female

DRUGS (25)
  1. SPIRIVA [Concomitant]
     Active Substance: TIOTROPIUM BROMIDE MONOHYDRATE
  2. FOLIC ACID. [Concomitant]
     Active Substance: FOLIC ACID
  3. DUPILUMAB [Suspect]
     Active Substance: DUPILUMAB
     Indication: ASTHMA
     Dosage: 600 MG, 1X
     Route: 058
     Dates: start: 20191106, end: 20191106
  4. FAMOTIDINE. [Concomitant]
     Active Substance: FAMOTIDINE
  5. ALBUTEROL [SALBUTAMOL] [Concomitant]
     Active Substance: ALBUTEROL
  6. MONTELUKAST [Concomitant]
     Active Substance: MONTELUKAST SODIUM
  7. RIZATRIPTAN. [Concomitant]
     Active Substance: RIZATRIPTAN
  8. DOXYCYCLA [Concomitant]
  9. DULERA [Concomitant]
     Active Substance: FORMOTEROL FUMARATE DIHYDRATE\MOMETASONE FUROATE
  10. EMGALITY [Concomitant]
     Active Substance: GALCANEZUMAB-GNLM
  11. IPRATROPIUM [Concomitant]
     Active Substance: IPRATROPIUM
  12. DUPILUMAB [Suspect]
     Active Substance: DUPILUMAB
     Indication: RESPIRATORY DISORDER
     Dosage: 300 MG, QOW
     Route: 058
     Dates: start: 2019
  13. DICYCLOMINE [Concomitant]
     Active Substance: DICYCLOMINE HYDROCHLORIDE
  14. HYDROXYZINE [Concomitant]
     Active Substance: HYDROXYZINE HYDROCHLORIDE
  15. LEVETIRACETAM. [Concomitant]
     Active Substance: LEVETIRACETAM
  16. PANTOPRAZOLE [Concomitant]
     Active Substance: PANTOPRAZOLE
  17. RANITIDINE. [Concomitant]
     Active Substance: RANITIDINE
  18. RABEPRAZOLE [Concomitant]
     Active Substance: RABEPRAZOLE
  19. ONDANSETRON [Concomitant]
     Active Substance: ONDANSETRON
  20. PREDNISONE. [Concomitant]
     Active Substance: PREDNISONE
  21. TAMSULOSIN [Concomitant]
     Active Substance: TAMSULOSIN
  22. VITAMIN D [VITAMIN D NOS] [Concomitant]
     Active Substance: VITAMIN D NOS
  23. METHAZOLAMIDE. [Concomitant]
     Active Substance: METHAZOLAMIDE
  24. METHIMAZOLE. [Concomitant]
     Active Substance: METHIMAZOLE
  25. LEVOCETIRIZINE [Concomitant]
     Active Substance: LEVOCETIRIZINE

REACTIONS (3)
  - Injection site inflammation [Not Recovered/Not Resolved]
  - Condition aggravated [Not Recovered/Not Resolved]
  - Rash [Not Recovered/Not Resolved]

NARRATIVE: CASE EVENT DATE: 2019
